FAERS Safety Report 8559028-2 (Version None)
Quarter: 2012Q3

REPORT INFORMATION
  Report Type: 
  Country: None (occurrence: None)
  Receive Date: 20120802
  Receipt Date: 20120724
  Transmission Date: 20120928
  Serious: Yes (Hospitalization)
  Sender: FDA-Public Use
  Company Number: US-BIOGENIDEC-2012BI027900

PATIENT
  Age: 71 Year
  Sex: Female

DRUGS (3)
  1. AVONEX [Suspect]
     Indication: MULTIPLE SCLEROSIS
     Route: 030
  2. AVONEX [Suspect]
     Route: 030
     Dates: start: 20080101
  3. AVONEX [Suspect]
     Route: 030
     Dates: start: 20080101

REACTIONS (4)
  - LOSS OF CONSCIOUSNESS [None]
  - PULMONARY HYPERTENSION [None]
  - CARDIAC FAILURE [None]
  - DYSPNOEA [None]
